FAERS Safety Report 16047037 (Version 2)
Quarter: 2021Q1

REPORT INFORMATION
  Report Type: Other
  Country: US (occurrence: US)
  Receive Date: 20190307
  Receipt Date: 20210108
  Transmission Date: 20210419
  Serious: No
  Sender: FDA-Public Use
  Company Number: US-ROCHE-2206827

PATIENT
  Age: 41 Year
  Sex: Female
  Weight: 49.03 kg

DRUGS (13)
  1. OCREVUS [Suspect]
     Active Substance: OCRELIZUMAB
     Indication: RELAPSING MULTIPLE SCLEROSIS
     Dosage: DATE OF  TREATMENT: 17/APR/2018, 01/NOV/2018, 20/SEP/2019, 29/OCT/2019, 07/MAY/2020, 04/NOV/2020
     Route: 042
     Dates: start: 20180417
  2. ONDANSETRON [Concomitant]
     Active Substance: ONDANSETRON
     Route: 048
  3. CYMBALTA [Suspect]
     Active Substance: DULOXETINE HYDROCHLORIDE
     Indication: PRODUCT USED FOR UNKNOWN INDICATION
     Route: 048
  4. DEXTROAMPHETAMINE. [Concomitant]
     Active Substance: DEXTROAMPHETAMINE
     Route: 048
     Dates: start: 20180907
  5. TRAZODONE [Concomitant]
     Active Substance: TRAZODONE HYDROCHLORIDE
     Route: 048
  6. DULCOLAXO [Concomitant]
     Dosage: 1 SUPPOSITORY EVERY OTHER DAY
     Route: 054
  7. NALTREXONE [Concomitant]
     Active Substance: NALTREXONE
     Route: 048
  8. ALIGN [Concomitant]
     Active Substance: BIFIDOBACTERIUM LONGUM SUBSP. INFANTIS
  9. QVAR [Concomitant]
     Active Substance: BECLOMETHASONE DIPROPIONATE
     Dosage: 1 PUFF INHALED 2 TIMES A DAY
  10. OCREVUS [Suspect]
     Active Substance: OCRELIZUMAB
     Indication: MULTIPLE SCLEROSIS
     Route: 042
     Dates: start: 20180404
  11. IMITREX [Concomitant]
     Active Substance: SUMATRIPTAN SUCCINATE
     Indication: MIGRAINE
     Dosage: 0.5 MG PRN
     Route: 048
     Dates: start: 20170511
  12. ORTHO TRI CYCLEN [Concomitant]
     Active Substance: ETHINYL ESTRADIOL\NORGESTIMATE
     Route: 048
  13. XANAX [Concomitant]
     Active Substance: ALPRAZOLAM
     Route: 048

REACTIONS (10)
  - Conjunctivitis [Unknown]
  - Dysarthria [Recovered/Resolved]
  - Lymphopenia [Unknown]
  - Stress [Unknown]
  - Mental impairment [Unknown]
  - Drug dependence [Unknown]
  - Fatigue [Unknown]
  - Speech disorder [Unknown]
  - Cognitive disorder [Recovered/Resolved]
  - Constipation [Unknown]

NARRATIVE: CASE EVENT DATE: 20180917
